FAERS Safety Report 23299125 (Version 1)
Quarter: 2023Q4

REPORT INFORMATION
  Report Type: Spontaneous
  Country: US (occurrence: US)
  Receive Date: 20231215
  Receipt Date: 20231215
  Transmission Date: 20240109
  Serious: No
  Sender: FDA-Public Use
  Company Number: ENDB23-02666

PATIENT
  Age: 39 Year
  Sex: Male
  Weight: 90.703 kg

DRUGS (2)
  1. TESTIM [Suspect]
     Active Substance: TESTOSTERONE
     Indication: Androgen deficiency
     Dosage: 25 MG, DAILY, USED 1/2 TUBE DAILY
     Route: 061
  2. TESTIM [Suspect]
     Active Substance: TESTOSTERONE
     Dosage: 50 MG, DAILY. USED 1 TUBE DAILY
     Route: 061
     Dates: start: 202301

REACTIONS (7)
  - Fatigue [Recovered/Resolved]
  - Feeling abnormal [Recovered/Resolved]
  - Illness [Recovered/Resolved]
  - Migraine [Recovered/Resolved]
  - Drug ineffective [Unknown]
  - Product physical issue [Unknown]
  - Product packaging quantity issue [Unknown]

NARRATIVE: CASE EVENT DATE: 20230501
